FAERS Safety Report 6315586-X (Version None)
Quarter: 2009Q3

REPORT INFORMATION
  Report Type: 
  Country: None (occurrence: None)
  Receive Date: 20090818
  Receipt Date: 20090810
  Transmission Date: 20100115
  Serious: Yes (Hospitalization)
  Sender: FDA-Public Use
  Company Number: CLOF-1000654

PATIENT
  Age: 72 Year

DRUGS (2)
  1. EVOLTRA (CLOFARABINE) SOLUTION FOR INFUSION [Suspect]
     Indication: ACUTE LEUKAEMIA
     Dates: start: 20090525
  2. DAUNORUBICIN HCL [Concomitant]

REACTIONS (3)
  - DEEP VEIN THROMBOSIS [None]
  - INFUSION SITE INFECTION [None]
  - NEUTROPENIA [None]
